FAERS Safety Report 17317860 (Version 2)
Quarter: 2020Q1

REPORT INFORMATION
  Report Type: Spontaneous
  Country: GB (occurrence: GB)
  Receive Date: 20200124
  Receipt Date: 20200318
  Transmission Date: 20200409
  Serious: Yes (Other)
  Sender: FDA-Public Use
  Company Number: GB-PFIZER INC-2020028922

PATIENT
  Age: 67 Year
  Sex: Female
  Weight: 32 kg

DRUGS (5)
  1. SERTRALINE HCL [Suspect]
     Active Substance: SERTRALINE HYDROCHLORIDE
     Dosage: 50 MG, 1X/DAY (AFTER BREAKFAST)
     Dates: start: 20191113
  2. FERROUS SULFATE. [Concomitant]
     Active Substance: FERROUS SULFATE
     Dosage: 2 DF, DAILY
     Dates: start: 20191203, end: 20191217
  3. LACTULOSE. [Concomitant]
     Active Substance: LACTULOSE
     Dosage: 30 ML, DAILY
     Dates: start: 20181211, end: 20191217
  4. FERROUS FUMARATE [Concomitant]
     Active Substance: FERROUS FUMARATE
     Dosage: 1 DF, DAILY
     Dates: start: 20191217
  5. PARACETAMOL [Concomitant]
     Active Substance: ACETAMINOPHEN
     Dosage: 1 DF, AS NEEDED (ONE TABLET FOUR TIMES DAILY)
     Dates: start: 20181211, end: 20191217

REACTIONS (1)
  - Inappropriate affect [Recovered/Resolved]

NARRATIVE: CASE EVENT DATE: 20191217
